FAERS Safety Report 12979877 (Version 4)
Quarter: 2017Q1

REPORT INFORMATION
  Report Type: Spontaneous
  Country: US (occurrence: US)
  Receive Date: 20161128
  Receipt Date: 20170222
  Transmission Date: 20170428
  Serious: Yes (Hospitalization)
  Sender: FDA-Public Use
  Company Number: US-VERTEX PHARMACEUTICALS-2016-006584

PATIENT
  Age: 15 Year
  Sex: Male
  Weight: 56 kg

DRUGS (10)
  1. MEPHYTON [Concomitant]
     Active Substance: PHYTONADIONE
  2. CAYSTON [Concomitant]
     Active Substance: AZTREONAM
  3. PREVACID [Concomitant]
     Active Substance: LANSOPRAZOLE
  4. ORKAMBI [Suspect]
     Active Substance: IVACAFTOR\LUMACAFTOR
     Indication: CYSTIC FIBROSIS
     Dosage: 200-125 MG, BID
     Route: 048
     Dates: start: 20150805, end: 2016
  5. MULTIVITAMIN [Concomitant]
     Active Substance: VITAMINS
  6. URSODIOL. [Concomitant]
     Active Substance: URSODIOL
  7. SODIUM CHLORIDE. [Concomitant]
     Active Substance: SODIUM CHLORIDE
  8. ORKAMBI [Suspect]
     Active Substance: IVACAFTOR\LUMACAFTOR
     Dosage: FULL DOSE
     Route: 048
     Dates: start: 201612
  9. OMEPRAZOLE. [Concomitant]
     Active Substance: OMEPRAZOLE
  10. AZITHROMYCIN ANHYDROUS. [Concomitant]
     Active Substance: AZITHROMYCIN ANHYDROUS

REACTIONS (1)
  - Infective pulmonary exacerbation of cystic fibrosis [Recovered/Resolved]

NARRATIVE: CASE EVENT DATE: 201610
